FAERS Safety Report 7366989-6 (Version None)
Quarter: 2011Q1

REPORT INFORMATION
  Report Type: 
  Country: None (occurrence: None)
  Receive Date: 20110317
  Receipt Date: 20110317
  Transmission Date: 20110831
  Serious: No
  Sender: FDA-Public Use
  Company Number: None

PATIENT
  Sex: Male
  Weight: 101.6057 kg

DRUGS (1)
  1. CEFADROXIL [Suspect]
     Indication: NAIL INFECTION
     Dosage: 500 MG EVERY 12 HOURS PO
     Route: 048
     Dates: start: 20110304, end: 20110314

REACTIONS (2)
  - MUSCULOSKELETAL CHEST PAIN [None]
  - PARAESTHESIA [None]
